FAERS Safety Report 5032326-5 (Version None)
Quarter: 2006Q2

REPORT INFORMATION
  Report Type: 
  Country: None (occurrence: None)
  Receive Date: 20060621
  Receipt Date: 20060621
  Transmission Date: 20061013
  Serious: Yes (Other)
  Sender: FDA-Public Use
  Company Number: None

PATIENT
  Sex: Female
  Weight: 81.6475 kg

DRUGS (1)
  1. BOTOX [Suspect]
     Dosage: 25 UNITS

REACTIONS (6)
  - ASTHENOPIA [None]
  - BLINDNESS UNILATERAL [None]
  - DRY EYE [None]
  - EYE DISORDER [None]
  - EYE IRRITATION [None]
  - EYELID PTOSIS [None]
